FAERS Safety Report 7946895-6 (Version None)
Quarter: 2011Q4

REPORT INFORMATION
  Report Type: 
  Country: None (occurrence: None)
  Receive Date: 20111129
  Receipt Date: 20111122
  Transmission Date: 20120403
  Serious: Yes (Hospitalization)
  Sender: FDA-Public Use
  Company Number: JP-ELI_LILLY_AND_COMPANY-JP201110005865

PATIENT
  Age: 75 Year
  Sex: Female

DRUGS (2)
  1. FORTEO [Suspect]
     Dosage: UNK
     Route: 058
     Dates: start: 20111122
  2. FORTEO [Suspect]
     Dosage: UNK
     Route: 058
     Dates: end: 20111120

REACTIONS (2)
  - ALOPECIA [None]
  - ARTHROPATHY [None]
